FAERS Safety Report 17469521 (Version 2)
Quarter: 2020Q1

REPORT INFORMATION
  Report Type: Spontaneous
  Country: US (occurrence: US)
  Receive Date: 20200227
  Receipt Date: 20200327
  Transmission Date: 20200409
  Serious: Yes (Hospitalization)
  Sender: FDA-Public Use
  Company Number: US-ASTRAZENECA-2020SE26948

PATIENT
  Age: 946 Month
  Sex: Female
  Weight: 79.4 kg

DRUGS (1)
  1. SYMBICORT [Suspect]
     Active Substance: BUDESONIDE\FORMOTEROL FUMARATE DIHYDRATE
     Indication: CHRONIC OBSTRUCTIVE PULMONARY DISEASE
     Dosage: 160/4.5 2 PUFFS IN THE MORNING AND 2 PUFFS IN THE EVENING
     Route: 055
     Dates: start: 2002

REACTIONS (3)
  - Bacteraemia [Recovered/Resolved]
  - Drug delivery system malfunction [Unknown]
  - Cellulitis [Recovered/Resolved]

NARRATIVE: CASE EVENT DATE: 202002
